FAERS Safety Report 7010859-X (Version None)
Quarter: 2010Q3

REPORT INFORMATION
  Report Type: 
  Country: None (occurrence: None)
  Receive Date: 20100923
  Receipt Date: 20100923
  Transmission Date: 20110219
  Serious: No
  Sender: FDA-Public Use
  Company Number: None

PATIENT
  Age: 37 Year
  Sex: Male
  Weight: 106.5953 kg

DRUGS (2)
  1. OXYCONTIN [Suspect]
     Indication: ARTHROPATHY
     Dosage: 80MG 1 EVERY 12HRS PO
     Route: 048
     Dates: start: 20100908, end: 20100921
  2. OXYCONTIN [Suspect]
     Indication: MULTIPLE INJURIES
     Dosage: 80MG 1 EVERY 12HRS PO
     Route: 048
     Dates: start: 20100908, end: 20100921

REACTIONS (8)
  - CONDITION AGGRAVATED [None]
  - DRUG INEFFECTIVE [None]
  - GASTROINTESTINAL DISORDER [None]
  - MEDICATION RESIDUE [None]
  - PAIN [None]
  - PANIC ATTACK [None]
  - PRODUCT FORMULATION ISSUE [None]
  - SLEEP DISORDER [None]
